FAERS Safety Report 24264686 (Version 1)
Quarter: 2024Q3

REPORT INFORMATION
  Report Type: Spontaneous
  Country: US (occurrence: None)
  Receive Date: 20240828
  Receipt Date: 20240828
  Transmission Date: 20241017
  Serious: Yes (Hospitalization)
  Sender: Public
  Company Number: None

PATIENT
  Age: 76 Year
  Sex: Female
  Weight: 99 kg

DRUGS (1)
  1. EYLEA [Suspect]
     Active Substance: AFLIBERCEPT
     Indication: Product used for unknown indication

REACTIONS (2)
  - Headache [None]
  - Cerebrovascular accident [None]

NARRATIVE: CASE EVENT DATE: 20240705
